FAERS Safety Report 8950466 (Version 1)
Quarter: 2012Q4

REPORT INFORMATION
  Report Type: Spontaneous
  Country: US (occurrence: None)
  Receive Date: 20121204
  Receipt Date: 20121204
  Transmission Date: 20130627
  Serious: No
  Sender: FDA-Public Use
  Company Number: None

PATIENT
  Age: 78 Year
  Sex: Female

DRUGS (1)
  1. XELODA 500MG GENENTECH [Suspect]
     Indication: LIVER, CANCER OF
     Dosage: 1500 MG BID PO
     Route: 048
     Dates: start: 201209, end: 201211

REACTIONS (1)
  - Cerebrovascular accident [None]
